FAERS Safety Report 23847818 (Version 1)
Quarter: 2024Q2

REPORT INFORMATION
  Report Type: Spontaneous
  Country: CN (occurrence: CN)
  Receive Date: 20240513
  Receipt Date: 20240513
  Transmission Date: 20240715
  Serious: Yes (Hospitalization)
  Sender: FDA-Public Use
  Company Number: CN-PFIZER INC-PV202400060774

PATIENT
  Age: 77 Year
  Sex: Female
  Weight: 65 kg

DRUGS (1)
  1. FLUCONAZOLE [Suspect]
     Active Substance: FLUCONAZOLE
     Indication: Respiratory tract infection fungal
     Dosage: 400 MG, 1X/DAY
     Route: 041
     Dates: start: 20240418, end: 20240421

REACTIONS (2)
  - Dermatitis allergic [Recovering/Resolving]
  - Pyrexia [Recovering/Resolving]

NARRATIVE: CASE EVENT DATE: 20240421
